FAERS Safety Report 16678397 (Version 1)
Quarter: 2019Q3

REPORT INFORMATION
  Report Type: Spontaneous
  Country: US (occurrence: US)
  Receive Date: 20190806
  Receipt Date: 20190806
  Transmission Date: 20191004
  Serious: Yes (Death)
  Sender: FDA-Public Use
  Company Number: None

PATIENT
  Age: 65 Year
  Sex: Male

DRUGS (4)
  1. OXALIPLATIN. [Suspect]
     Active Substance: OXALIPLATIN
     Indication: PANCREATIC CARCINOMA
     Dosage: ?          OTHER FREQUENCY:MONTHLY;?
     Route: 042
     Dates: start: 20190627, end: 20190716
  2. LEUCOVORIN. [Concomitant]
     Active Substance: LEUCOVORIN
  3. IRINOTECAN [Concomitant]
     Active Substance: IRINOTECAN
  4. NEULASTA [Suspect]
     Active Substance: PEGFILGRASTIM
     Indication: NEOPLASM MALIGNANT
     Dosage: ?          OTHER FREQUENCY:EVERY 2 WEEKS;?
     Route: 058
     Dates: start: 20190627, end: 20190727

REACTIONS (1)
  - Death [None]

NARRATIVE: CASE EVENT DATE: 20190716
